FAERS Safety Report 5123824-4 (Version None)
Quarter: 2006Q4

REPORT INFORMATION
  Report Type: 
  Country: None (occurrence: None)
  Receive Date: 20061010
  Receipt Date: 20061004
  Transmission Date: 20070319
  Serious: Yes (Other)
  Sender: FDA-Public Use
  Company Number: JP-AVENTIS-200613040JP

PATIENT

DRUGS (1)
  1. AMARYL [Suspect]
     Route: 048

REACTIONS (1)
  - HEMIPLEGIA [None]
